FAERS Safety Report 6296623-8 (Version None)
Quarter: 2009Q3

REPORT INFORMATION
  Report Type: 
  Country: None (occurrence: None)
  Receive Date: 20090804
  Receipt Date: 20090730
  Transmission Date: 20100115
  Serious: Yes (Other)
  Sender: FDA-Public Use
  Company Number: US-BRISTOL-MYERS SQUIBB COMPANY-14722623

PATIENT
  Age: 74 Year
  Sex: Female
  Weight: 61 kg

DRUGS (2)
  1. PACLITAXEL [Suspect]
     Indication: NON-SMALL CELL LUNG CANCER
     Dosage: DAY 1 OF EACH 21 DAY CYCLE
     Route: 042
     Dates: start: 20090416
  2. CARBOPLATIN [Suspect]
     Indication: NON-SMALL CELL LUNG CANCER
     Dates: start: 20090416

REACTIONS (4)
  - ASTHENIA [None]
  - CONFUSIONAL STATE [None]
  - GAIT DISTURBANCE [None]
  - NAUSEA [None]
